FAERS Safety Report 7668853-1 (Version None)
Quarter: 2011Q3

REPORT INFORMATION
  Report Type: 
  Country: None (occurrence: None)
  Receive Date: 20110808
  Receipt Date: 20110801
  Transmission Date: 20111222
  Serious: No
  Sender: FDA-Public Use
  Company Number: US-PFIZER INC-2011175851

PATIENT
  Age: 24 Year
  Sex: Female

DRUGS (1)
  1. ZITHROMAX [Suspect]
     Dosage: 350 MG IN 300 CC NS
     Route: 042

REACTIONS (2)
  - INJECTION SITE DISCOMFORT [None]
  - VEIN PAIN [None]
